FAERS Safety Report 11800340 (Version 1)
Quarter: 2015Q4

REPORT INFORMATION
  Report Type: Spontaneous
  Country: AU (occurrence: AU)
  Receive Date: 20151203
  Receipt Date: 20151203
  Transmission Date: 20160305
  Serious: Yes (Disabling)
  Sender: FDA-Public Use
  Company Number: AU-ASTRAZENECA-2015SF00932

PATIENT
  Age: 24361 Day
  Sex: Male
  Weight: 130 kg

DRUGS (9)
  1. UREX [Concomitant]
     Active Substance: METHENAMINE HIPPURATE
  2. SOMAC [Concomitant]
     Active Substance: PANTOPRAZOLE SODIUM
  3. CRESTOR [Concomitant]
     Active Substance: ROSUVASTATIN CALCIUM
  4. TENORMIN [Concomitant]
     Active Substance: ATENOLOL
  5. KOMBIGLYZE XR [Suspect]
     Active Substance: METFORMIN HYDROCHLORIDE\SAXAGLIPTIN HYDROCHLORIDE
     Indication: DIABETES MELLITUS
     Dosage: 5/1000 1 NOCTE
     Route: 048
     Dates: start: 20141110, end: 20150720
  6. ATACAND [Concomitant]
     Active Substance: CANDESARTAN CILEXETIL
  7. GLIBENCLAMIDE [Concomitant]
     Active Substance: GLYBURIDE
  8. DIABEX [Concomitant]
     Active Substance: METFORMIN HYDROCHLORIDE
  9. MODURETIC 5-50 [Concomitant]
     Active Substance: AMILORIDE HYDROCHLORIDE\HYDROCHLOROTHIAZIDE

REACTIONS (1)
  - Palpitations [Recovered/Resolved]

NARRATIVE: CASE EVENT DATE: 20141110
